FAERS Safety Report 10710564 (Version 1)
Quarter: 2015Q1

REPORT INFORMATION
  Report Type: Spontaneous
  Country: US (occurrence: None)
  Receive Date: 20150112
  Receipt Date: 20150112
  Transmission Date: 20150721
  Serious: Yes (Other)
  Sender: FDA-Public Use
  Company Number: 2014PAC00075

PATIENT
  Age: 2 Year
  Sex: Male
  Weight: 16.8 kg

DRUGS (2)
  1. CEFACLOR. [Suspect]
     Active Substance: CEFACLOR
     Indication: OTITIS MEDIA
     Route: 048
     Dates: start: 20141124, end: 20141202
  2. VENTOLIN [Concomitant]
     Active Substance: ALBUTEROL SULFATE

REACTIONS (5)
  - Hypersensitivity [None]
  - Wheezing [None]
  - Ear pain [None]
  - Urticaria [None]
  - Rash [None]

NARRATIVE: CASE EVENT DATE: 2014
